FAERS Safety Report 8283446-3 (Version None)
Quarter: 2012Q2

REPORT INFORMATION
  Report Type: 
  Country: None (occurrence: None)
  Receive Date: 20120413
  Receipt Date: 20120410
  Transmission Date: 20120825
  Serious: Yes (Other)
  Sender: FDA-Public Use
  Company Number: US-ROCHE-794037

PATIENT
  Sex: Female
  Weight: 185 kg

DRUGS (1)
  1. ACCUTANE [Suspect]
     Indication: ACNE
     Route: 065
     Dates: start: 19970101, end: 20030101

REACTIONS (5)
  - POLYARTHRITIS [None]
  - DIVERTICULITIS [None]
  - IRRITABLE BOWEL SYNDROME [None]
  - DEPRESSION [None]
  - INFLAMMATORY BOWEL DISEASE [None]
